FAERS Safety Report 20883612 (Version 1)
Quarter: 2022Q2

REPORT INFORMATION
  Report Type: Spontaneous
  Country: US (occurrence: US)
  Receive Date: 20220527
  Receipt Date: 20220527
  Transmission Date: 20220721
  Serious: No
  Sender: FDA-Public Use
  Company Number: US-Ipsen Biopharmaceuticals, Inc.-2022-14698

PATIENT
  Age: 44 Year
  Sex: Female

DRUGS (1)
  1. DYSPORT [Suspect]
     Active Substance: ABOBOTULINUMTOXINA
     Indication: Skin wrinkling
     Dosage: 80-100 UNITS
     Route: 065
     Dates: start: 2020, end: 2020

REACTIONS (5)
  - Visual impairment [Unknown]
  - Eyelid ptosis [Unknown]
  - Drug ineffective [Unknown]
  - Prescribed overdose [Unknown]
  - Drug ineffective [Unknown]

NARRATIVE: CASE EVENT DATE: 20200101
